FAERS Safety Report 6190527-7 (Version None)
Quarter: 2009Q2

REPORT INFORMATION
  Report Type: 
  Country: None (occurrence: None)
  Receive Date: 20090513
  Receipt Date: 20090513
  Transmission Date: 20091009
  Serious: No
  Sender: FDA-Public Use
  Company Number: None

PATIENT
  Sex: Female
  Weight: 83.0083 kg

DRUGS (1)
  1. TOVIAZ [Suspect]
     Indication: URINARY INCONTINENCE
     Dosage: 1 TABLET DAILY PO
     Route: 048
     Dates: start: 20090504, end: 20090510

REACTIONS (7)
  - ASTHMA [None]
  - BLOODY DISCHARGE [None]
  - NASAL DRYNESS [None]
  - NASAL ULCER [None]
  - OEDEMA PERIPHERAL [None]
  - SCAB [None]
  - URINE FLOW DECREASED [None]
